FAERS Safety Report 21422802 (Version 3)
Quarter: 2022Q4

REPORT INFORMATION
  Report Type: Report from Study
  Country: CN (occurrence: None)
  Receive Date: 20221007
  Receipt Date: 20221027
  Transmission Date: 20230113
  Serious: Yes (Hospitalization)
  Sender: FDA-Public Use
  Company Number: CN-Eisai Medical Research-EC-2022-124906

PATIENT
  Age: 59 Year
  Sex: Male
  Weight: 60 kg

DRUGS (8)
  1. LENVATINIB [Suspect]
     Active Substance: LENVATINIB
     Indication: Hepatocellular carcinoma
     Route: 048
     Dates: start: 20220625
  2. COMPOUND MUJI MIXTURE [Concomitant]
     Indication: Hepatocellular carcinoma
     Dosage: 1VIAL, UNKNOWN DOSE AND FREQUENCY
     Route: 048
     Dates: start: 202202, end: 2022
  3. SINTILIMAB [Concomitant]
     Active Substance: SINTILIMAB
     Indication: Hepatocellular carcinoma
     Dosage: DOSE UNKNOWN
     Route: 041
     Dates: start: 202202, end: 202206
  4. BEVACIZUMAB [Concomitant]
     Active Substance: BEVACIZUMAB
     Indication: Hepatocellular carcinoma
     Dosage: UNKNOWN DOSE
     Route: 041
     Dates: start: 202202, end: 202206
  5. HUAIER GRANULES [Concomitant]
     Indication: Hepatocellular carcinoma
     Route: 048
     Dates: start: 202202
  6. GLYCYRRHIZIN [Concomitant]
     Active Substance: GLYCYRRHIZIN
     Indication: Hepatitis B
     Route: 048
     Dates: start: 202202, end: 202204
  7. ENTECAVIR [Concomitant]
     Active Substance: ENTECAVIR
     Indication: Hepatitis B
     Route: 048
     Dates: start: 2021
  8. CELECOXIB [Concomitant]
     Active Substance: CELECOXIB
     Indication: Arthralgia
     Dosage: UNKNOWN DOSE OR FREQUENCY
     Route: 048
     Dates: start: 2022, end: 2022

REACTIONS (2)
  - Arthralgia [Not Recovered/Not Resolved]
  - Decreased appetite [Recovering/Resolving]

NARRATIVE: CASE EVENT DATE: 20220701
